FAERS Safety Report 5888436-3 (Version None)
Quarter: 2008Q3

REPORT INFORMATION
  Report Type: 
  Country: None (occurrence: None)
  Receive Date: 20080918
  Receipt Date: 20080905
  Transmission Date: 20090109
  Serious: Yes (Other)
  Sender: FDA-Public Use
  Company Number: US-GENENTECH-265182

PATIENT
  Sex: Female
  Weight: 53.061 kg

DRUGS (13)
  1. XOLAIR [Suspect]
     Indication: ASTHMA
     Dosage: 150 MG, Q4W
     Route: 058
     Dates: start: 20080227
  2. ALLEGRA [Concomitant]
  3. FLUTICASONE PROPIONATE [Concomitant]
  4. EPIPEN [Concomitant]
  5. VERAMYST [Concomitant]
  6. PATADAY [Concomitant]
  7. SINGULAIR [Concomitant]
  8. THEOPHYLLINE [Concomitant]
  9. FLONASE [Concomitant]
  10. ADVAIR DISKUS 100/50 [Concomitant]
  11. MAXAIR [Concomitant]
  12. XOPENEX [Concomitant]
  13. ATROVENT [Concomitant]

REACTIONS (1)
  - DEPRESSION [None]
